FAERS Safety Report 5293973-9 (Version None)
Quarter: 2007Q2

REPORT INFORMATION
  Report Type: 
  Country: None (occurrence: None)
  Receive Date: 20070405
  Receipt Date: 20070322
  Transmission Date: 20071010
  Serious: Yes (Hospitalization, Other)
  Sender: FDA-Public Use
  Company Number: 2007-GWUS-0134

PATIENT
  Age: 70 Year
  Sex: Female
  Weight: 61.2356 kg

DRUGS (4)
  1. TAMBOCOR [Suspect]
     Indication: ATRIAL FIBRILLATION
     Dosage: 50MG - BID - PO
     Route: 048
     Dates: start: 20060101, end: 20070101
  2. TAMBOCOR [Suspect]
     Indication: CARDIAC ARREST
     Dosage: 50MG - BID - PO
     Route: 048
     Dates: start: 20060101, end: 20070101
  3. CALCIUM [Concomitant]
  4. EYE DROPS [Concomitant]

REACTIONS (4)
  - PAIN [None]
  - PLEURAL EFFUSION [None]
  - PNEUMONITIS [None]
  - PYREXIA [None]
